FAERS Safety Report 10467265 (Version 1)
Quarter: 2014Q3

REPORT INFORMATION
  Report Type: Report from Study
  Country: BR (occurrence: BR)
  Receive Date: 20140922
  Receipt Date: 20140922
  Transmission Date: 20150326
  Serious: Yes (Death, Other)
  Sender: FDA-Public Use
  Company Number: PHHY2014BR123210

PATIENT
  Sex: Female

DRUGS (1)
  1. EXELON [Suspect]
     Active Substance: RIVASTIGMINE TARTRATE
     Dosage: UNK UKN, UNK

REACTIONS (6)
  - Spinal fracture [Unknown]
  - Femur fracture [Unknown]
  - Fall [Unknown]
  - Death [Fatal]
  - Lung disorder [Unknown]
  - Diabetes mellitus [Unknown]

NARRATIVE: CASE EVENT DATE: 20140808
